FAERS Safety Report 24214640 (Version 1)
Quarter: 2024Q3

REPORT INFORMATION
  Report Type: Spontaneous
  Country: US (occurrence: US)
  Receive Date: 20240815
  Receipt Date: 20240815
  Transmission Date: 20241017
  Serious: No
  Sender: RVL PHARMACEUTICALS
  Company Number: US-RVL_Pharmaceuticals-USA-POI1255202300251

PATIENT
  Age: 72 Year
  Sex: Female

DRUGS (2)
  1. UPNEEQ [Suspect]
     Active Substance: OXYMETAZOLINE HYDROCHLORIDE
     Indication: Eyelid ptosis
     Dosage: OD
     Route: 047
     Dates: start: 20230925, end: 20230927
  2. SYSTANE ULTRA [Concomitant]
     Active Substance: POLYETHYLENE GLYCOL 400\PROPYLENE GLYCOL
     Indication: Dry eye
     Route: 047

REACTIONS (7)
  - Headache [Recovered/Resolved]
  - Eyelid disorder [Recovered/Resolved]
  - Eyelid sensory disorder [Recovered/Resolved]
  - Eyelids pruritus [Recovered/Resolved]
  - Erythema of eyelid [Recovered/Resolved]
  - Swelling of eyelid [Recovered/Resolved]
  - Drug ineffective [Recovered/Resolved]

NARRATIVE: CASE EVENT DATE: 20230925
